FAERS Safety Report 13424282 (Version 2)
Quarter: 2017Q2

REPORT INFORMATION
  Report Type: Spontaneous
  Country: LU (occurrence: LU)
  Receive Date: 20170410
  Receipt Date: 20170508
  Transmission Date: 20170830
  Serious: Yes (Hospitalization)
  Sender: FDA-Public Use
  Company Number: LU-TEVA-756761GER

PATIENT
  Age: 44 Year
  Sex: Female

DRUGS (1)
  1. TEVAGRASTIM 48 MUI / 0.8 ML [Suspect]
     Active Substance: FILGRASTIM
     Indication: NEUTROPENIA
     Dosage: 1 DOSAGE FORMS DAILY;
     Route: 042
     Dates: start: 20170313, end: 20170314

REACTIONS (3)
  - Presyncope [Recovered/Resolved]
  - Abdominal pain [Recovered/Resolved]
  - Hyperhidrosis [Recovered/Resolved]

NARRATIVE: CASE EVENT DATE: 20170313
